FAERS Safety Report 14310405 (Version 1)
Quarter: 2017Q4

REPORT INFORMATION
  Report Type: Spontaneous
  Country: US (occurrence: US)
  Receive Date: 20171220
  Receipt Date: 20171220
  Transmission Date: 20180321
  Serious: Yes (Hospitalization, Other)
  Sender: FDA-Public Use
  Company Number: US-ELI_LILLY_AND_COMPANY-US201712005894

PATIENT
  Sex: Female

DRUGS (7)
  1. HUMULIN R [Suspect]
     Active Substance: INSULIN HUMAN
     Dosage: 14 U, EACH EVENING (AT DINNER)
     Route: 058
     Dates: start: 2012
  2. HUMULIN R [Suspect]
     Active Substance: INSULIN HUMAN
     Indication: TYPE 2 DIABETES MELLITUS
     Dosage: 12 U, EACH MORNING
     Route: 058
     Dates: start: 2012
  3. HUMULIN R [Suspect]
     Active Substance: INSULIN HUMAN
     Dosage: 16 U, DAILY (AT LUNCH)
     Route: 058
  4. HUMULIN R [Suspect]
     Active Substance: INSULIN HUMAN
     Dosage: 16 U, DAILY (AT LUNCH)
     Route: 058
     Dates: start: 2012
  5. HUMULIN R [Suspect]
     Active Substance: INSULIN HUMAN
     Dosage: 16 U, EACH MORNING
     Route: 058
  6. PREDNISONE. [Suspect]
     Active Substance: PREDNISONE
     Indication: TENDON RUPTURE
     Dosage: UNK, UNKNOWN
     Route: 065
     Dates: end: 201711
  7. HUMULIN R [Suspect]
     Active Substance: INSULIN HUMAN
     Dosage: 14 U, EACH EVENING
     Route: 058

REACTIONS (14)
  - Blood glucose increased [Not Recovered/Not Resolved]
  - Blood glucose abnormal [Unknown]
  - Arthralgia [Unknown]
  - Cataract [Recovering/Resolving]
  - Tendon rupture [Not Recovered/Not Resolved]
  - Arthritis [Not Recovered/Not Resolved]
  - Blood glucose decreased [Recovering/Resolving]
  - Spinal osteoarthritis [Not Recovered/Not Resolved]
  - Gait inability [Not Recovered/Not Resolved]
  - Blood glucose increased [Not Recovered/Not Resolved]
  - Finger deformity [Not Recovered/Not Resolved]
  - Diabetic retinopathy [Recovering/Resolving]
  - Colour blindness [Not Recovered/Not Resolved]
  - Neuropathy peripheral [Not Recovered/Not Resolved]

NARRATIVE: CASE EVENT DATE: 2012
